FAERS Safety Report 15168810 (Version 2)
Quarter: 2018Q3

REPORT INFORMATION
  Report Type: Spontaneous
  Country: US (occurrence: US)
  Receive Date: 20180720
  Receipt Date: 20180804
  Transmission Date: 20181010
  Serious: No
  Sender: FDA-Public Use
  Company Number: US-009507513-1807USA008740

PATIENT
  Sex: Female

DRUGS (2)
  1. NEXPLANON [Suspect]
     Active Substance: ETONOGESTREL
     Dosage: 1 IMPLANT, FOR THREE YEAR IN THE LEFT ARM
     Route: 059
     Dates: start: 20180710
  2. NEXPLANON [Suspect]
     Active Substance: ETONOGESTREL
     Dosage: 1 IMPLANT, FOR THREE YEAR IN THE LEFT ARM
     Route: 059
     Dates: end: 20180710

REACTIONS (4)
  - Weight increased [Unknown]
  - Pain in extremity [Unknown]
  - Incorrect drug administration duration [Unknown]
  - Implant site pain [Unknown]

NARRATIVE: CASE EVENT DATE: 20180710
